FAERS Safety Report 5750991-1 (Version None)
Quarter: 2008Q2

REPORT INFORMATION
  Report Type: 
  Country: None (occurrence: None)
  Receive Date: 20080528
  Receipt Date: 20080522
  Transmission Date: 20081010
  Serious: Yes (Disabling)
  Sender: FDA-Public Use
  Company Number: NO-ALLERGAN-0806199US

PATIENT
  Sex: Male
  Weight: 31 kg

DRUGS (3)
  1. BLINDED BOTULINUM TOXIN TYPE A - GENERAL [Suspect]
     Indication: DROOLING
     Dosage: 100 UNITS, SINGLE
     Route: 030
     Dates: start: 20080220, end: 20080220
  2. OSLOPOT [Concomitant]
     Indication: EPILEPSY
     Dosage: 200 MG, SINGLE
     Route: 048
     Dates: start: 20080201
  3. LOSEC MUPS HP [Concomitant]
     Indication: GASTROOESOPHAGEAL REFLUX DISEASE
     Dosage: 20 MG, QD
     Dates: start: 20080201

REACTIONS (1)
  - SPEECH DISORDER [None]
